FAERS Safety Report 14825704 (Version 1)
Quarter: 2018Q2

REPORT INFORMATION
  Report Type: Spontaneous
  Country: PT (occurrence: PT)
  Receive Date: 20180430
  Receipt Date: 20180430
  Transmission Date: 20180711
  Serious: Yes (Death, Hospitalization, Other)
  Sender: FDA-Public Use
  Company Number: PT-ASTELLAS-2018US019819

PATIENT
  Age: 35 Year
  Sex: Male

DRUGS (2)
  1. TACROLIMUS. [Suspect]
     Active Substance: TACROLIMUS
     Indication: LUNG TRANSPLANT
     Route: 065
  2. EVEROLIMUS. [Concomitant]
     Active Substance: EVEROLIMUS
     Indication: LUNG TRANSPLANT
     Dosage: 0.5 MG, TWICE DAILY
     Route: 065

REACTIONS (6)
  - Anaemia [Unknown]
  - Prostatitis [Unknown]
  - Kaposi^s sarcoma [Unknown]
  - Abdominal sepsis [Fatal]
  - Cholecystitis acute [Unknown]
  - Product use in unapproved indication [Unknown]
